FAERS Safety Report 18979747 (Version 1)
Quarter: 2021Q1

REPORT INFORMATION
  Report Type: Spontaneous
  Country: US (occurrence: US)
  Receive Date: 20210305
  Receipt Date: 20210305
  Transmission Date: 20210420
  Serious: Yes (Other)
  Sender: FDA-Public Use
  Company Number: None

PATIENT
  Age: 66 Year
  Sex: Female

DRUGS (7)
  1. LOSARTAN. [Concomitant]
     Active Substance: LOSARTAN
  2. ZETIA [Concomitant]
     Active Substance: EZETIMIBE
  3. OMEPRAZOLE. [Concomitant]
     Active Substance: OMEPRAZOLE
  4. LABETALOL [Concomitant]
     Active Substance: LABETALOL\LABETALOL HYDROCHLORIDE
  5. TRIFERIC [Suspect]
     Active Substance: FERRIC PYROPHOSPHATE CITRATE
     Indication: MINERAL SUPPLEMENTATION
     Dosage: ?          QUANTITY:1PK??}25 GALLS H20;OTHER FREQUENCY:EVERY DIALYSIS TX;OTHER ROUTE:ADM VIA THE CENTRAL BICARB LOOP?
     Dates: start: 20200902, end: 20201102
  6. PROVASTATIN [Concomitant]
  7. AMLODIPINE [Concomitant]
     Active Substance: AMLODIPINE BESYLATE

REACTIONS (2)
  - Thrombosis in device [None]
  - Complication associated with device [None]

NARRATIVE: CASE EVENT DATE: 20210211
